FAERS Safety Report 10136469 (Version 2)
Quarter: 2015Q1

REPORT INFORMATION
  Report Type: Spontaneous
  Country: US (occurrence: None)
  Receive Date: 20140425
  Receipt Date: 20150302
  Transmission Date: 20150720
  Serious: Yes (Death, Hospitalization)
  Sender: FDA-Public Use
  Company Number: UTC-047380

PATIENT
  Age: 55 Year
  Sex: Female

DRUGS (1)
  1. REMODULIN [Suspect]
     Active Substance: TREPROSTINIL
     Indication: PULMONARY ARTERIAL HYPERTENSION
     Dosage: 92.16 UG/KG (0.064 UG/KG.1 IN 1 MIN),INTRAVENOUS DRIP
     Route: 041
     Dates: start: 20140128

REACTIONS (1)
  - Fluid overload [None]

NARRATIVE: CASE EVENT DATE: 20140401
